FAERS Safety Report 5056845-0 (Version None)
Quarter: 2006Q2

REPORT INFORMATION
  Report Type: 
  Country: None (occurrence: None)
  Receive Date: 20060622
  Receipt Date: 20050509
  Transmission Date: 20061013
  Serious: Yes (Hospitalization, Other)
  Sender: FDA-Public Use
  Company Number: US-JNJFOC-20050501996

PATIENT
  Age: 38 Year
  Sex: Female

DRUGS (3)
  1. DURAGESIC-100 [Suspect]
     Indication: INTENTIONAL DRUG MISUSE
     Dosage: ROUTES SUBLINGUAL AND TRANSDERMAL
     Route: 060
  2. HYDROMORPHONE HCL [Suspect]
     Indication: INTENTIONAL DRUG MISUSE
     Dosage: PARENERAL
     Route: 051
  3. MEPERIDINE HCL [Suspect]
     Indication: INTENTIONAL DRUG MISUSE
     Dosage: PARENTERAL
     Route: 051

REACTIONS (1)
  - DRUG ABUSER [None]
